FAERS Safety Report 5150928-2 (Version None)
Quarter: 2006Q4

REPORT INFORMATION
  Report Type: 
  Country: None (occurrence: None)
  Receive Date: 20061115
  Receipt Date: 20061109
  Transmission Date: 20070319
  Serious: Yes (Hospitalization)
  Sender: FDA-Public Use
  Company Number: GB-SP-2006-03027

PATIENT
  Age: 59 Year
  Sex: Male

DRUGS (2)
  1. IMMUCYST [Suspect]
     Indication: BLADDER CANCER
     Route: 043
     Dates: start: 20060501
  2. FINASTERIDE [Concomitant]
     Indication: PROSTATE EXAMINATION ABNORMAL

REACTIONS (1)
  - PNEUMONITIS [None]
